FAERS Safety Report 17224748 (Version 3)
Quarter: 2020Q1

REPORT INFORMATION
  Report Type: Report from Study
  Country: US (occurrence: US)
  Receive Date: 20200102
  Receipt Date: 20200220
  Transmission Date: 20200409
  Serious: Yes (Hospitalization, Disabling)
  Sender: FDA-Public Use
  Company Number: US-IPSEN BIOPHARMACEUTICALS, INC.-2019-25727

PATIENT
  Age: 56 Year
  Sex: Female
  Weight: 78 kg

DRUGS (5)
  1. CATAPRES [Concomitant]
     Active Substance: CLONIDINE HYDROCHLORIDE
  2. ONIVYDE [Suspect]
     Active Substance: IRINOTECAN HYDROCHLORIDE
     Route: 042
     Dates: start: 202001
  3. ONIVYDE [Suspect]
     Active Substance: IRINOTECAN HYDROCHLORIDE
     Indication: PANCREATIC CARCINOMA METASTATIC
     Route: 042
     Dates: start: 20191203
  4. LISINOPRIL. [Concomitant]
     Active Substance: LISINOPRIL
  5. HYDROMORPHONE [Concomitant]
     Active Substance: HYDROMORPHONE

REACTIONS (8)
  - Wheelchair user [Unknown]
  - Muscle spasms [Recovered/Resolved]
  - Surgery [Unknown]
  - Memory impairment [Unknown]
  - Malaise [Unknown]
  - Feeling abnormal [Recovered/Resolved]
  - Hospice care [Unknown]
  - Hypoaesthesia [Recovered/Resolved]

NARRATIVE: CASE EVENT DATE: 20191203
